FAERS Safety Report 15062172 (Version 2)
Quarter: 2018Q3

REPORT INFORMATION
  Report Type: Report from Study
  Country: US (occurrence: US)
  Receive Date: 20180625
  Receipt Date: 20180717
  Transmission Date: 20181010
  Serious: Yes (Hospitalization, Other)
  Sender: FDA-Public Use
  Company Number: US-TAKEDA-2018TUS020502

PATIENT
  Age: 27 Year
  Sex: Male
  Weight: 84.6 kg

DRUGS (5)
  1. OMEGA 3 DHA                        /08184401/ [Concomitant]
     Active Substance: OMEGA-3 FATTY ACIDS\VITAMINS
     Indication: SUPPLEMENTATION THERAPY
     Dosage: 2 G, QD
     Route: 048
     Dates: start: 2011
  2. VEDOLIZUMAB [Suspect]
     Active Substance: VEDOLIZUMAB
     Indication: PRODUCT USED FOR UNKNOWN INDICATION
     Dosage: UNK UNK, 1/WEEK
     Route: 058
     Dates: start: 20180522
  3. IMODIUM [Concomitant]
     Active Substance: LOPERAMIDE HYDROCHLORIDE
     Indication: DEFAECATION URGENCY
     Dosage: UNK
     Route: 048
     Dates: start: 201801
  4. ZINC. [Concomitant]
     Active Substance: ZINC
     Indication: SUPPLEMENTATION THERAPY
     Dosage: 100 MG, QD
     Route: 048
     Dates: start: 2011
  5. CHOLECALCIFEROL [Concomitant]
     Active Substance: CHOLECALCIFEROL
     Indication: SUPPLEMENTATION THERAPY
     Dosage: UNK UNK, QD
     Route: 048
     Dates: start: 2011

REACTIONS (1)
  - Sepsis [Unknown]

NARRATIVE: CASE EVENT DATE: 20180617
